FAERS Safety Report 4821280-4 (Version None)
Quarter: 2005Q4

REPORT INFORMATION
  Report Type: 
  Country: None (occurrence: None)
  Receive Date: 20051104
  Receipt Date: 20051104
  Transmission Date: 20060501
  Serious: Yes (Hospitalization)
  Sender: FDA-Public Use
  Company Number: None

PATIENT
  Sex: Female
  Weight: 77.1115 kg

DRUGS (9)
  1. TOPOTECAN GLAXOSMITHKLINE [Suspect]
     Indication: NEOPLASM RECURRENCE
     Dosage: 3.32 MG WEEKLY IV
     Route: 042
     Dates: start: 20050929
  2. TOPOTECAN GLAXOSMITHKLINE [Suspect]
     Indication: OVARIAN CANCER
     Dosage: 3.32 MG WEEKLY IV
     Route: 042
     Dates: start: 20050929
  3. LOTENSIN [Concomitant]
  4. CALCIUM GLUCONATE [Concomitant]
  5. SENNA [Concomitant]
  6. ACYCLOVIR [Concomitant]
  7. PROVENTIL [Concomitant]
  8. ACT AEROSOL [Concomitant]
  9. ZOFRAN [Concomitant]

REACTIONS (6)
  - CHEST PAIN [None]
  - CHRONIC OBSTRUCTIVE PULMONARY DISEASE [None]
  - DYSPNOEA [None]
  - METASTASES TO LUNG [None]
  - PLEURAL EFFUSION [None]
  - RESTRICTIVE PULMONARY DISEASE [None]
